FAERS Safety Report 9218326 (Version 4)
Quarter: 2013Q2

REPORT INFORMATION
  Report Type: Spontaneous
  Country: US (occurrence: US)
  Receive Date: 20130409
  Receipt Date: 20130516
  Transmission Date: 20140414
  Serious: Yes (Hospitalization, Disabling)
  Sender: FDA-Public Use
  Company Number: US-BIOGENIDEC-2013BI030860

PATIENT
  Age: 54 Year
  Sex: Female

DRUGS (5)
  1. TYSABRI [Suspect]
     Indication: MULTIPLE SCLEROSIS
     Route: 042
     Dates: start: 20070822
  2. AMPYRA [Concomitant]
     Indication: GAIT DISTURBANCE
     Route: 048
  3. BACLOFEN [Concomitant]
  4. COLACE [Concomitant]
     Indication: CONSTIPATION
     Route: 048
  5. SYNTHROID [Concomitant]
     Indication: HYPOTHYROIDISM
     Route: 048

REACTIONS (3)
  - Gait disturbance [Not Recovered/Not Resolved]
  - Muscular weakness [Recovered/Resolved]
  - Muscle spasticity [Recovered/Resolved]
